FAERS Safety Report 23308777 (Version 1)
Quarter: 2023Q4

REPORT INFORMATION
  Report Type: Spontaneous
  Country: US (occurrence: None)
  Receive Date: 20231215
  Receipt Date: 20231215
  Transmission Date: 20240110
  Serious: Yes (Death)
  Sender: FDA-Public Use
  Company Number: None

PATIENT
  Age: 75 Year
  Sex: Male

DRUGS (4)
  1. COLISTIMETHATE SODIUM [Suspect]
     Active Substance: COLISTIMETHATE SODIUM
     Indication: Cystic fibrosis
     Dosage: OTHER FREQUENCY : BID 28ON/28OFF;?OTHER ROUTE : NEBULIZER ;?
     Route: 050
     Dates: start: 201902
  2. STERILE WATER INJ (10ML/VL) [Concomitant]
  3. CAYSTON INH SOLN [Concomitant]
  4. VALGANCICLOVIR [Concomitant]

REACTIONS (1)
  - Death [None]

NARRATIVE: CASE EVENT DATE: 20231125
